FAERS Safety Report 8374535-3 (Version None)
Quarter: 2012Q2

REPORT INFORMATION
  Report Type: 
  Country: None (occurrence: None)
  Receive Date: 20120521
  Receipt Date: 20120507
  Transmission Date: 20120825
  Serious: Yes (Other)
  Sender: FDA-Public Use
  Company Number: US-JNJFOC-20120508261

PATIENT
  Sex: Female
  Weight: 81.19 kg

DRUGS (10)
  1. ZOCOR [Suspect]
     Route: 065
  2. NORVASC [Suspect]
     Route: 048
     Dates: start: 20100101
  3. LEVAQUIN [Suspect]
     Indication: PRODUCT USED FOR UNKNOWN INDICATION
     Route: 065
     Dates: start: 20100101
  4. XANAX [Concomitant]
     Route: 065
  5. ALL OTHER THERAPEUTIC DRUGS [Suspect]
     Indication: PRODUCT USED FOR UNKNOWN INDICATION
     Route: 065
  6. NORVASC [Suspect]
     Indication: HYPERTENSION
     Route: 048
     Dates: start: 20100101
  7. AMLODIPINE BESYLATE [Suspect]
     Indication: HYPERTENSION
     Route: 048
     Dates: start: 20100101, end: 20100101
  8. ZOCOR [Suspect]
     Indication: BLOOD CHOLESTEROL
     Route: 065
     Dates: start: 20100101
  9. MEDROL [Suspect]
     Indication: INTERVERTEBRAL DISC PROTRUSION
     Route: 065
     Dates: start: 20100101, end: 20100101
  10. ZOCOR [Suspect]
     Route: 065

REACTIONS (12)
  - ARTERIAL DISORDER [None]
  - DRUG DISPENSING ERROR [None]
  - HYPERTENSION [None]
  - CALCINOSIS [None]
  - DRUG HYPERSENSITIVITY [None]
  - JOINT SWELLING [None]
  - URTICARIA [None]
  - DIZZINESS [None]
  - TRANSIENT ISCHAEMIC ATTACK [None]
  - PALPITATIONS [None]
  - VITAMIN D DECREASED [None]
  - FEELING ABNORMAL [None]
